FAERS Safety Report 14597354 (Version 3)
Quarter: 2018Q2

REPORT INFORMATION
  Report Type: Spontaneous
  Country: JP (occurrence: JP)
  Receive Date: 20180305
  Receipt Date: 20180411
  Transmission Date: 20180711
  Serious: Yes (Other)
  Sender: FDA-Public Use
  Company Number: JP-ROCHE-2080774

PATIENT
  Age: 85 Year
  Sex: Male
  Weight: 65 kg

DRUGS (9)
  1. BLOPRESS [Concomitant]
     Active Substance: CANDESARTAN CILEXETIL
     Route: 065
     Dates: start: 20120903
  2. LENDORMIN [Concomitant]
     Active Substance: BROTIZOLAM
     Route: 065
     Dates: start: 20120903
  3. MAGMITT [Concomitant]
     Active Substance: MAGNESIUM OXIDE
     Route: 048
     Dates: start: 20130212
  4. CHOLEBINE [Concomitant]
     Active Substance: COLESTILAN CHLORIDE
     Route: 065
     Dates: start: 20120903
  5. AMLODIPINE [Concomitant]
     Active Substance: AMLODIPINE BESYLATE
     Dosage: DOSAGE IS UNCERTAIN.
     Route: 048
  6. STARSIS [Concomitant]
     Active Substance: NATEGLINIDE
     Route: 065
     Dates: start: 20120903
  7. TAMIFLU [Suspect]
     Active Substance: OSELTAMIVIR PHOSPHATE
     Indication: INFLUENZA
     Route: 048
     Dates: start: 20180214, end: 20180214
  8. BAYASPIRIN [Concomitant]
     Active Substance: ASPIRIN
     Dosage: DOSAGE IS UNCERTAIN.
     Route: 065
     Dates: start: 20120903
  9. MAOTO [Suspect]
     Active Substance: HERBALS
     Indication: PRODUCT USED FOR UNKNOWN INDICATION
     Route: 048
     Dates: start: 20180214, end: 20180214

REACTIONS (3)
  - Loss of consciousness [Recovered/Resolved]
  - Blood creatinine increased [Recovered/Resolved]
  - Shock [Recovered/Resolved]

NARRATIVE: CASE EVENT DATE: 20180214
